FAERS Safety Report 6824545-X (Version None)
Quarter: 2010Q3

REPORT INFORMATION
  Report Type: 
  Country: None (occurrence: None)
  Receive Date: 20100708
  Receipt Date: 20061103
  Transmission Date: 20110219
  Serious: No
  Sender: FDA-Public Use
  Company Number: US-PFIZER INC-2006138726

PATIENT
  Sex: Female
  Weight: 72.57 kg

DRUGS (5)
  1. CHANTIX [Suspect]
     Indication: SMOKING CESSATION THERAPY
     Route: 048
     Dates: start: 20061020
  2. NEXIUM [Concomitant]
  3. CALCIUM CARBONATE [Concomitant]
  4. ACETYLSALICYLIC ACID [Concomitant]
  5. ALEVE (CAPLET) [Concomitant]

REACTIONS (2)
  - FEELING HOT [None]
  - INSOMNIA [None]
